FAERS Safety Report 21829526 (Version 4)
Quarter: 2023Q4

REPORT INFORMATION
  Report Type: Other
  Country: CA (occurrence: CA)
  Receive Date: 20230106
  Receipt Date: 20231218
  Transmission Date: 20240110
  Serious: Yes (Other)
  Sender: FDA-Public Use
  Company Number: CA-002147023-PHHY2014CA126187

PATIENT
  Age: 18 Year
  Sex: Female

DRUGS (13)
  1. XOLAIR [Suspect]
     Active Substance: OMALIZUMAB
     Indication: Chronic spontaneous urticaria
     Route: 058
     Dates: start: 20140903, end: 20180703
  2. XOLAIR [Suspect]
     Active Substance: OMALIZUMAB
     Route: 058
     Dates: start: 20150105
  3. XOLAIR [Suspect]
     Active Substance: OMALIZUMAB
     Dosage: (EVERY 4 WEEKS (VIAL))
     Route: 058
  4. XOLAIR [Suspect]
     Active Substance: OMALIZUMAB
     Route: 058
     Dates: start: 20170125, end: 20180703
  5. XOLAIR [Suspect]
     Active Substance: OMALIZUMAB
     Dosage: (EVERY 4 WEEKS (VIAL))
     Route: 058
     Dates: start: 20191217
  6. XOLAIR [Suspect]
     Active Substance: OMALIZUMAB
     Route: 058
     Dates: start: 20200117
  7. CETIRIZINE [Concomitant]
     Active Substance: CETIRIZINE HYDROCHLORIDE
  8. CIMETIDINE [Concomitant]
     Active Substance: CIMETIDINE
     Indication: Product used for unknown indication
     Route: 065
  9. RANITIDINE [Concomitant]
     Active Substance: RANITIDINE
  10. PREDNISONE [Concomitant]
     Active Substance: PREDNISONE
     Dates: start: 201412
  11. BENADRYL [Concomitant]
     Active Substance: DIPHENHYDRAMINE HYDROCHLORIDE
  12. BENADRYL [Concomitant]
     Active Substance: DIPHENHYDRAMINE HYDROCHLORIDE
     Dosage: AS TREATMENT FOR FEELING WEEK 20 MINUTES POST-INJECTION.
     Route: 048
  13. DIPHENHYDRAMINE HYDROCHLORIDE [Concomitant]
     Active Substance: DIPHENHYDRAMINE HYDROCHLORIDE

REACTIONS (23)
  - Depression [Unknown]
  - Angioedema [Unknown]
  - Lip swelling [Unknown]
  - Swelling [Unknown]
  - Urticaria [Not Recovered/Not Resolved]
  - Pruritus [Unknown]
  - Stress [Unknown]
  - Influenza [Unknown]
  - Oedema [Unknown]
  - Asthenia [Unknown]
  - Disturbance in attention [Unknown]
  - Infectious mononucleosis [Unknown]
  - General physical health deterioration [Unknown]
  - Blood creatinine increased [Unknown]
  - Flank pain [Unknown]
  - Abdominal distension [Unknown]
  - Abdominal pain upper [Unknown]
  - Symptom recurrence [Unknown]
  - Peripheral swelling [Recovering/Resolving]
  - Rash [Recovered/Resolved]
  - Chronic spontaneous urticaria [Not Recovered/Not Resolved]
  - Product dose omission issue [Unknown]
  - Therapy partial responder [Unknown]

NARRATIVE: CASE EVENT DATE: 20140920
